FAERS Safety Report 14062397 (Version 1)
Quarter: 2017Q4

REPORT INFORMATION
  Report Type: Spontaneous
  Country: ZA (occurrence: ZA)
  Receive Date: 20171009
  Receipt Date: 20171009
  Transmission Date: 20180321
  Serious: Yes (Hospitalization, Disabling, Other)
  Sender: FDA-Public Use
  Company Number: ZA-CIPLA LTD.-2016ZA07500

PATIENT

DRUGS (1)
  1. LEVOFLOXACIN. [Suspect]
     Active Substance: LEVOFLOXACIN
     Indication: BRONCHITIS
     Dosage: 750 MG, UNK
     Route: 048
     Dates: start: 201109

REACTIONS (3)
  - Tendonitis [Unknown]
  - Infection [Unknown]
  - Tendon rupture [Recovered/Resolved with Sequelae]
